FAERS Safety Report 9472615 (Version 1)
Quarter: 2013Q3

REPORT INFORMATION
  Report Type: Spontaneous
  Country: US (occurrence: None)
  Receive Date: 20130821
  Receipt Date: 20130821
  Transmission Date: 20140515
  Serious: Yes (Life-Threatening)
  Sender: FDA-Public Use
  Company Number: None

PATIENT
  Age: 54 Year
  Sex: Female

DRUGS (1)
  1. CIMZIA [Suspect]
     Dosage: INJECT 200 MG UNDER THE SKIN EVERY 10 DAYS
     Dates: start: 20110728, end: 20130206

REACTIONS (1)
  - Thrombotic thrombocytopenic purpura [None]
